FAERS Safety Report 16933254 (Version 1)
Quarter: 2019Q4

REPORT INFORMATION
  Report Type: Spontaneous
  Country: US (occurrence: US)
  Receive Date: 20191018
  Receipt Date: 20191018
  Transmission Date: 20200122
  Serious: Yes (Hospitalization)
  Sender: FDA-Public Use
  Company Number: US-ROCHE-2369853

PATIENT
  Age: 59 Year
  Sex: Male

DRUGS (1)
  1. FUZEON [Suspect]
     Active Substance: ENFUVIRTIDE
     Indication: ACQUIRED IMMUNODEFICIENCY SYNDROME
     Route: 065
     Dates: start: 20190120

REACTIONS (4)
  - Visual impairment [Unknown]
  - Weight increased [Unknown]
  - Transient ischaemic attack [Unknown]
  - Hypoacusis [Unknown]

NARRATIVE: CASE EVENT DATE: 20190120
